FAERS Safety Report 7307242-6 (Version None)
Quarter: 2011Q1

REPORT INFORMATION
  Report Type: 
  Country: None (occurrence: None)
  Receive Date: 20110223
  Receipt Date: 20110215
  Transmission Date: 20110831
  Serious: Yes (Other)
  Sender: FDA-Public Use
  Company Number: US-PFIZER INC-2011018828

PATIENT
  Sex: Male

DRUGS (3)
  1. CELEBREX [Suspect]
     Indication: NECK PAIN
     Dosage: 1 DF, 2X/DAY
     Route: 048
     Dates: start: 20101101
  2. ZYRTEC-D 12 HOUR [Concomitant]
     Dosage: UNK
     Route: 048
  3. CELEBREX [Suspect]
     Dosage: 1 DF, 2X/DAY
     Route: 048
     Dates: start: 20110120, end: 20110122

REACTIONS (3)
  - VISION BLURRED [None]
  - DIZZINESS [None]
  - BACK PAIN [None]
